FAERS Safety Report 9177082 (Version 2)
Quarter: 2013Q2

REPORT INFORMATION
  Report Type: Spontaneous
  Country: AR (occurrence: AR)
  Receive Date: 20130321
  Receipt Date: 20130531
  Transmission Date: 20140414
  Serious: Yes (Hospitalization, Other)
  Sender: FDA-Public Use
  Company Number: PHHY2013AR025868

PATIENT
  Sex: Female

DRUGS (2)
  1. TOBI PODHALER [Suspect]
     Dosage: UNK
  2. ANTIBIOTICS [Concomitant]
     Dosage: UNK UKN, UNK

REACTIONS (8)
  - Fatigue [Not Recovered/Not Resolved]
  - Haemoptysis [Recovered/Resolved]
  - Tremor [Not Recovered/Not Resolved]
  - Dizziness [Unknown]
  - Pyrexia [Recovered/Resolved]
  - Malaise [Unknown]
  - Headache [Unknown]
  - Cough [Recovering/Resolving]
